FAERS Safety Report 4289220-7 (Version None)
Quarter: 2004Q1

REPORT INFORMATION
  Report Type: 
  Country: None (occurrence: None)
  Receive Date: 20040205
  Receipt Date: 20030204
  Transmission Date: 20041129
  Serious: Yes (Hospitalization)
  Sender: FDA-Public Use
  Company Number: CEL-2003-00301-ROC

PATIENT
  Sex: Female

DRUGS (1)
  1. TUSSIONEX ER SUSPENSION [Suspect]

REACTIONS (3)
  - CYANOSIS [None]
  - FEELING ABNORMAL [None]
  - OXYGEN SUPPLEMENTATION [None]
